FAERS Safety Report 11878096 (Version 3)
Quarter: 2016Q2

REPORT INFORMATION
  Report Type: Report from Study
  Country: US (occurrence: US)
  Receive Date: 20151230
  Receipt Date: 20160607
  Transmission Date: 20160815
  Serious: Yes (Death)
  Sender: FDA-Public Use
  Company Number: PHHY2015US131465

PATIENT
  Age: 71 Year
  Sex: Female
  Weight: 71.5 kg

DRUGS (2)
  1. MEKINIST [Suspect]
     Active Substance: TRAMETINIB DIMETHYL SULFOXIDE
     Indication: ENDOMETRIAL CANCER METASTATIC
     Dosage: 0.5 MG, BID
     Route: 048
     Dates: start: 201501, end: 20160420
  2. VOTRIENT [Suspect]
     Active Substance: PAZOPANIB HYDROCHLORIDE
     Indication: ENDOMETRIAL CANCER
     Dosage: 200 MG, QD
     Route: 048
     Dates: start: 20150324, end: 20150825

REACTIONS (5)
  - Swelling [Not Recovered/Not Resolved]
  - Contusion [Not Recovered/Not Resolved]
  - Peripheral swelling [Recovering/Resolving]
  - Product use issue [Unknown]
  - Endometrial cancer metastatic [Fatal]

NARRATIVE: CASE EVENT DATE: 20150815
